FAERS Safety Report 8457465-8 (Version None)
Quarter: 2012Q2

REPORT INFORMATION
  Report Type: 
  Country: None (occurrence: None)
  Receive Date: 20120621
  Receipt Date: 20120618
  Transmission Date: 20120825
  Serious: Yes (Hospitalization)
  Sender: FDA-Public Use
  Company Number: DE-TEVA-344160USA

PATIENT
  Sex: Male
  Weight: 78 kg

DRUGS (5)
  1. PANTOPRAZOLE SODIUM [Concomitant]
     Dosage: 40 MILLIGRAM;
  2. MIXTARD HUMAN 70/30 [Concomitant]
     Dosage: 26 IE MORNING, 14 IE IN EVENING
  3. RITUXIMAB [Suspect]
     Route: 042
     Dates: start: 20110315
  4. TREANDA [Suspect]
     Route: 042
  5. ASPIRIN [Concomitant]

REACTIONS (2)
  - ATRIAL FIBRILLATION [None]
  - URINARY TRACT INFECTION [None]
